FAERS Safety Report 15902563 (Version 1)
Quarter: 2019Q1

REPORT INFORMATION
  Report Type: Spontaneous
  Country: BR (occurrence: BR)
  Receive Date: 20190201
  Receipt Date: 20190201
  Transmission Date: 20190417
  Serious: Yes (Other)
  Sender: FDA-Public Use
  Company Number: PHHY2019BR009760

PATIENT
  Sex: Female
  Weight: 72 kg

DRUGS (2)
  1. LECTRUM [Suspect]
     Active Substance: LEUPROLIDE ACETATE
     Indication: ANXIETY
  2. LECTRUM [Suspect]
     Active Substance: LEUPROLIDE ACETATE
     Indication: PRECOCIOUS PUBERTY
     Dosage: 3.75 MG, QMO
     Route: 058
     Dates: start: 201312, end: 201411

REACTIONS (6)
  - Abdominal pain upper [Unknown]
  - Oesophageal candidiasis [Not Recovered/Not Resolved]
  - Depression [Unknown]
  - Mental disorder [Unknown]
  - Anxiety [Unknown]
  - Panic attack [Unknown]

NARRATIVE: CASE EVENT DATE: 2014
